FAERS Safety Report 23342505 (Version 3)
Quarter: 2024Q1

REPORT INFORMATION
  Report Type: Spontaneous
  Country: CN (occurrence: None)
  Receive Date: 20231227
  Receipt Date: 20240116
  Transmission Date: 20240410
  Serious: Yes (Death, Hospitalization, Other)
  Sender: FDA-Public Use
  Company Number: 2023A268398

PATIENT
  Age: 21915 Day
  Sex: Male

DRUGS (1)
  1. IMFINZI [Suspect]
     Active Substance: DURVALUMAB
     Indication: Lung neoplasm malignant
     Dosage: TWO VIALS OF 500MG PER CYCLE
     Route: 042
     Dates: end: 202311

REACTIONS (6)
  - Death [Fatal]
  - Drug resistance [Unknown]
  - Malignant neoplasm progression [Unknown]
  - Pleural effusion [Unknown]
  - Dry throat [Not Recovered/Not Resolved]
  - Vocal cord paralysis [Not Recovered/Not Resolved]
